FAERS Safety Report 14568118 (Version 2)
Quarter: 2018Q1

REPORT INFORMATION
  Report Type: Spontaneous
  Country: RO (occurrence: RO)
  Receive Date: 20180223
  Receipt Date: 20180321
  Transmission Date: 20180509
  Serious: Yes (Life-Threatening, Other)
  Sender: FDA-Public Use
  Company Number: RO-SA-2018SA037143

PATIENT
  Sex: Female
  Weight: 2.43 kg

DRUGS (3)
  1. ENOXAPARIN SODIUM. [Suspect]
     Active Substance: ENOXAPARIN SODIUM
     Route: 064
  2. PENTOXIFYLLINE. [Suspect]
     Active Substance: PENTOXIFYLLINE
     Route: 064
  3. ASPIRIN. [Suspect]
     Active Substance: ASPIRIN
     Route: 064

REACTIONS (20)
  - Sepsis neonatal [Recovered/Resolved]
  - Neonatal respiratory distress syndrome [Unknown]
  - Corneal disorder [Unknown]
  - Anterior chamber cleavage syndrome [Unknown]
  - Hyperhidrosis [Unknown]
  - Congenital central nervous system anomaly [Unknown]
  - Developmental glaucoma [Recovered/Resolved with Sequelae]
  - Premature baby [Unknown]
  - Foetal exposure during pregnancy [Unknown]
  - Coarctation of the aorta [Recovering/Resolving]
  - Corneal neovascularisation [Unknown]
  - Vitreous detachment [Unknown]
  - Microphthalmos [Unknown]
  - Developmental glaucoma [Unknown]
  - Corneal opacity [Unknown]
  - Corneal leukoma [Unknown]
  - Drug effect incomplete [Unknown]
  - Systolic dysfunction [Unknown]
  - General physical health deterioration [Unknown]
  - Livedo reticularis [Unknown]
